FAERS Safety Report 11039200 (Version 1)
Quarter: 2015Q2

REPORT INFORMATION
  Report Type: Spontaneous
  Country: BR (occurrence: BR)
  Receive Date: 20150416
  Receipt Date: 20150416
  Transmission Date: 20150821
  Serious: Yes (Hospitalization, Other)
  Sender: FDA-Public Use
  Company Number: BR-PFIZER INC-2015123572

PATIENT
  Age: 70 Year
  Sex: Male
  Weight: 82 kg

DRUGS (7)
  1. TRADJENTA [Concomitant]
     Active Substance: LINAGLIPTIN
     Indication: DIABETES MELLITUS
     Dosage: UNK
  2. AAS [Concomitant]
     Active Substance: ASPIRIN
     Dosage: STRENGTH 100 MG
  3. LIPITOR [Suspect]
     Active Substance: ATORVASTATIN CALCIUM
     Dosage: STRENGTH 20 MG
     Route: 048
     Dates: start: 2009
  4. CARVEDILOL. [Concomitant]
     Active Substance: CARVEDILOL
     Indication: CARDIAC DISORDER
     Dosage: UNK
     Dates: start: 2000
  5. CILOSTAZOL. [Concomitant]
     Active Substance: CILOSTAZOL
     Indication: ANGIOPATHY
     Dosage: UNK
     Dates: start: 2012
  6. DOXAZOSIN [Concomitant]
     Active Substance: DOXAZOSIN\DOXAZOSIN MESYLATE
     Indication: PROSTATIC DISORDER
     Dosage: UNK
  7. OMEPRAZOLE. [Concomitant]
     Active Substance: OMEPRAZOLE
     Indication: GASTRIC DISORDER
     Dosage: UNK

REACTIONS (4)
  - Nephrolithiasis [Unknown]
  - Dengue fever [Unknown]
  - Toe amputation [Unknown]
  - Renal disorder [Not Recovered/Not Resolved]

NARRATIVE: CASE EVENT DATE: 2012
